FAERS Safety Report 9569666 (Version 2)
Quarter: 2013Q4

REPORT INFORMATION
  Report Type: Spontaneous
  Country: US (occurrence: US)
  Receive Date: 20130930
  Receipt Date: 20131106
  Transmission Date: 20140711
  Serious: Yes (Hospitalization)
  Sender: FDA-Public Use
  Company Number: US-AMGEN-USASP2013066510

PATIENT
  Age: 59 Year
  Sex: Female

DRUGS (2)
  1. ENBREL [Suspect]
     Indication: RHEUMATOID ARTHRITIS
     Dosage: UNK
     Route: 065
     Dates: start: 199910
  2. ENBREL [Suspect]

REACTIONS (4)
  - Bronchopulmonary aspergillosis [Recovered/Resolved]
  - Cough [Recovered/Resolved]
  - Adverse event [Unknown]
  - Nasopharyngitis [Recovered/Resolved]
